FAERS Safety Report 24461131 (Version 1)
Quarter: 2024Q4

REPORT INFORMATION
  Report Type: Spontaneous
  Country: US (occurrence: US)
  Receive Date: 20241018
  Receipt Date: 20241018
  Transmission Date: 20250115
  Serious: No
  Sender: UCB
  Company Number: US-UCBSA-2024031462

PATIENT
  Age: 32 Year
  Sex: Female
  Weight: 58.05 kg

DRUGS (1)
  1. BIMZELX [Suspect]
     Active Substance: BIMEKIZUMAB-BKZX
     Indication: Psoriasis
     Dosage: 320 MILLIGRAM, EV 4 WEEKS AT WEEK 8, 12 AND 16 WEEKS AS DIRECTED
     Route: 058
     Dates: start: 202406

REACTIONS (2)
  - Swelling [Unknown]
  - Acne [Unknown]

NARRATIVE: CASE EVENT DATE: 20240601
